FAERS Safety Report 17671950 (Version 1)
Quarter: 2020Q2

REPORT INFORMATION
  Report Type: Spontaneous
  Country: US (occurrence: US)
  Receive Date: 20200415
  Receipt Date: 20200415
  Transmission Date: 20200713
  Serious: No
  Sender: FDA-Public Use
  Company Number: US-ALKERMES INC.-ALK-2019-003153

PATIENT
  Age: 60 Year
  Sex: Female

DRUGS (3)
  1. OTHER COUGH SUPPRESSANTS [Suspect]
     Active Substance: UNSPECIFIED INGREDIENT
     Indication: COUGH
     Dosage: UNK UNK, Q4H
     Dates: start: 201906
  2. VIVITROL [Suspect]
     Active Substance: NALTREXONE
     Indication: ALCOHOLISM
     Dosage: 380 MG, QMO
     Route: 030
     Dates: start: 20190523
  3. XANAX [Concomitant]
     Active Substance: ALPRAZOLAM
     Indication: PRODUCT USED FOR UNKNOWN INDICATION
     Dosage: UNK

REACTIONS (9)
  - Alcoholism [Not Recovered/Not Resolved]
  - Medication error [Recovered/Resolved]
  - Cough [Unknown]
  - Nasal congestion [Not Recovered/Not Resolved]
  - Pyrexia [Not Recovered/Not Resolved]
  - Death of relative [Recovered/Resolved]
  - Nasopharyngitis [Not Recovered/Not Resolved]
  - Vomiting [Recovered/Resolved]
  - Malaise [Not Recovered/Not Resolved]

NARRATIVE: CASE EVENT DATE: 201906
